FAERS Safety Report 5040016-8 (Version None)
Quarter: 2006Q2

REPORT INFORMATION
  Report Type: 
  Country: None (occurrence: None)
  Receive Date: 20060630
  Receipt Date: 20060620
  Transmission Date: 20061013
  Serious: Yes (Other)
  Sender: FDA-Public Use
  Company Number: DE-JNJFOC-20060502067

PATIENT
  Age: 84 Year
  Sex: Male
  Weight: 85 kg

DRUGS (7)
  1. REMINYL [Suspect]
     Route: 048
  2. REMINYL [Suspect]
     Indication: DEMENTIA ALZHEIMER'S TYPE
     Route: 048
  3. TORSEMIDE [Interacting]
     Indication: HYPERTENSION
     Route: 048
  4. CAPOZIDE [Concomitant]
     Indication: HYPERTENSION
     Route: 048
  5. ALLOPURINOL [Concomitant]
     Route: 065
  6. KARVEZIDE [Concomitant]
     Route: 065
  7. PENTAERYTHRITOL TETRANITRATE [Concomitant]
     Route: 065

REACTIONS (2)
  - BLOOD PRESSURE INCREASED [None]
  - DRUG INTERACTION [None]
